FAERS Safety Report 6614026-0 (Version None)
Quarter: 2010Q1

REPORT INFORMATION
  Report Type: 
  Country: None (occurrence: None)
  Receive Date: 20100304
  Receipt Date: 20100224
  Transmission Date: 20100710
  Serious: Yes (Hospitalization, Disabling, Other)
  Sender: FDA-Public Use
  Company Number: US-MERCK-0506USA02139

PATIENT
  Age: 65 Year
  Sex: Female
  Weight: 70 kg

DRUGS (7)
  1. FOSAMAX [Suspect]
     Indication: OSTEOPOROSIS
     Route: 048
     Dates: start: 20030602, end: 20040101
  2. DILTIAZEM HYDROCHLORIDE [Concomitant]
     Route: 048
  3. DIOVAN HCT [Concomitant]
     Route: 048
  4. ZOCOR [Concomitant]
     Route: 048
  5. AMITRIPTYLINE HYDROCHLORIDE [Concomitant]
     Route: 048
  6. ACIPHEX [Concomitant]
     Route: 048
  7. NEURONTIN [Concomitant]
     Route: 048

REACTIONS (42)
  - ACUTE SINUSITIS [None]
  - ANORECTAL DISORDER [None]
  - AORTIC ANEURYSM [None]
  - APHTHOUS STOMATITIS [None]
  - BLADDER DISORDER [None]
  - BLOOD POTASSIUM DECREASED [None]
  - CAROTID ARTERY DISEASE [None]
  - CAROTID ARTERY STENOSIS [None]
  - CARPAL TUNNEL SYNDROME [None]
  - CONSTIPATION [None]
  - CONTUSION [None]
  - COUGH [None]
  - DIARRHOEA [None]
  - DYSPHAGIA [None]
  - EXOSTOSIS [None]
  - FATIGUE [None]
  - FLATULENCE [None]
  - GASTROOESOPHAGEAL REFLUX DISEASE [None]
  - GINGIVAL DISORDER [None]
  - HAEMORRHAGE [None]
  - HERNIA [None]
  - HYPERHIDROSIS [None]
  - IRRITABLE BOWEL SYNDROME [None]
  - LOSS OF CONSCIOUSNESS [None]
  - MAMMOGRAM ABNORMAL [None]
  - MASS [None]
  - MYOCARDIAL INFARCTION [None]
  - NASAL CONGESTION [None]
  - NAUSEA [None]
  - ORAL CAVITY FISTULA [None]
  - OSTEOMYELITIS [None]
  - OSTEONECROSIS [None]
  - PHLEBITIS [None]
  - PRESYNCOPE [None]
  - SINUSITIS [None]
  - SPINAL CORD DISORDER [None]
  - SYNCOPE [None]
  - TEMPOROMANDIBULAR JOINT SYNDROME [None]
  - TOOTH ABSCESS [None]
  - TOOTH INFECTION [None]
  - VAGINAL DISORDER [None]
  - VOMITING [None]
